FAERS Safety Report 6549087-0 (Version None)
Quarter: 2010Q1

REPORT INFORMATION
  Report Type: 
  Country: None (occurrence: None)
  Receive Date: 20100125
  Receipt Date: 20100114
  Transmission Date: 20100710
  Serious: Yes (Disabling, Other)
  Sender: FDA-Public Use
  Company Number: FR-ASTRAZENECA-2010SE01646

PATIENT
  Age: 55 Day
  Sex: Female
  Weight: 4.5 kg

DRUGS (3)
  1. PROPOFOL [Suspect]
     Indication: MAINTENANCE OF ANAESTHESIA
     Dosage: 4.4 MG/KG
  2. SUFENTANYL [Concomitant]
     Dosage: 0.4 UG/KG
  3. SEVOFLURANE [Concomitant]
     Dosage: 3.1-5 %

REACTIONS (3)
  - FAILURE TO THRIVE [None]
  - HEAD CIRCUMFERENCE ABNORMAL [None]
  - PARTIAL SEIZURES WITH SECONDARY GENERALISATION [None]
